FAERS Safety Report 8241318-4 (Version None)
Quarter: 2012Q1

REPORT INFORMATION
  Report Type: 
  Country: None (occurrence: None)
  Receive Date: 20120328
  Receipt Date: 20120321
  Transmission Date: 20120608
  Serious: Yes (Other)
  Sender: FDA-Public Use
  Company Number: US-PFIZER INC-2012074268

PATIENT
  Sex: Female
  Weight: 70.748 kg

DRUGS (8)
  1. INDOMETHACIN [Concomitant]
     Indication: RIB FRACTURE
  2. CHANTIX [Suspect]
     Indication: SMOKING CESSATION THERAPY
     Dosage: 0.5 MG, 1X/DAY
     Route: 048
  3. INDOMETHACIN [Concomitant]
     Indication: ANKLE FRACTURE
     Dosage: UNK
  4. INDOMETHACIN [Concomitant]
     Indication: OSTEOARTHRITIS
  5. OMEPRAZOLE [Concomitant]
     Indication: GASTRIC ULCER
     Dosage: UNK
  6. LYRICA [Concomitant]
     Indication: FIBROMYALGIA
     Dosage: 50 MG, DAILY
  7. INDOMETHACIN [Concomitant]
     Indication: CARPAL TUNNEL SYNDROME
  8. PREVACID [Concomitant]
     Indication: GASTRIC ULCER
     Dosage: UNK

REACTIONS (3)
  - SINUSITIS [None]
  - WEIGHT DECREASED [None]
  - SQUAMOUS CELL CARCINOMA [None]
